FAERS Safety Report 8287018-6 (Version None)
Quarter: 2012Q2

REPORT INFORMATION
  Report Type: 
  Country: None (occurrence: None)
  Receive Date: 20120416
  Receipt Date: 20120405
  Transmission Date: 20120825
  Serious: Yes (Hospitalization, Other)
  Sender: FDA-Public Use
  Company Number: US-ASTRAZENECA-2012SE00561

PATIENT
  Age: 59 Year
  Sex: Female
  Weight: 56.7 kg

DRUGS (14)
  1. SEROQUEL [Suspect]
     Route: 048
  2. LUVOX [Concomitant]
  3. CLONAZEPAM [Concomitant]
  4. WELLBUTRIN [Concomitant]
  5. IMITREX [Concomitant]
  6. SEROQUEL [Suspect]
     Route: 048
  7. SEROQUEL [Suspect]
     Route: 048
  8. SEROQUEL [Suspect]
     Indication: OBSESSIVE-COMPULSIVE DISORDER
     Route: 048
  9. SEROQUEL [Suspect]
     Indication: DEPRESSION
     Route: 048
  10. FLURAZEPAM [Concomitant]
  11. ZOLOFT [Concomitant]
  12. SEROQUEL [Suspect]
     Route: 048
  13. SEROQUEL [Suspect]
     Route: 048
  14. SEROQUEL [Suspect]
     Route: 048

REACTIONS (3)
  - INTENTIONAL DRUG MISUSE [None]
  - LOWER LIMB FRACTURE [None]
  - FALL [None]
